FAERS Safety Report 8533836-6 (Version None)
Quarter: 2012Q3

REPORT INFORMATION
  Report Type: 
  Country: None (occurrence: None)
  Receive Date: 20120705
  Receipt Date: 20120618
  Transmission Date: 20120928
  Serious: Yes (Hospitalization)
  Sender: FDA-Public Use
  Company Number: 2012PROUSA01520

PATIENT
  Age: 68 Year
  Sex: Male
  Weight: 80.3 kg

DRUGS (20)
  1. POTASSIUM CHLORIDE [Concomitant]
  2. FEXOFENADINE HYDROCHLORIDE [Concomitant]
  3. IBUPROFEN (ADVIL) [Concomitant]
  4. TRELSTAR LA (TRIPTORELIN EMBONATE) [Concomitant]
  5. PROVENGE [Suspect]
     Dosage: 250 ML, SINGLE, INTRAVENOUS
     Route: 042
     Dates: start: 20120511, end: 20120511
  6. COMPAZINE [Concomitant]
  7. METFORMIN HCL [Concomitant]
  8. CASODEX [Concomitant]
  9. LEVOTHYROXINE SODIUM [Concomitant]
  10. PEARLS ACIDOPHILUS (BIFIDOBACTERIUM LONGUM, LACTOBACILLUS ACIDOPHILUS) [Concomitant]
  11. DIPHENHYDRAMINE HCL [Concomitant]
  12. ACETAMINOPHEN [Concomitant]
  13. LIPITOR [Concomitant]
  14. PROVENGE [Suspect]
     Indication: PROSTATE CANCER METASTATIC
     Dosage: 250 ML, SINGLE, INTRAVENOUS
     Route: 042
     Dates: start: 20120427, end: 20120427
  15. MEGACE [Concomitant]
  16. METOPROLOL SUCCINATE [Concomitant]
  17. FLONASE [Concomitant]
  18. ASPIRIN [Concomitant]
  19. ZOMETA [Concomitant]
  20. LISINOPRIL + HIDROCLOROTIAZIDE (HYDROCHLOROTHIAZIDE, LISINOPRIL) [Concomitant]

REACTIONS (19)
  - METASTASES TO BONE [None]
  - PROSTATIC SPECIFIC ANTIGEN INCREASED [None]
  - MENTAL STATUS CHANGES [None]
  - CEREBROVASCULAR ACCIDENT [None]
  - PYREXIA [None]
  - WEIGHT DECREASED [None]
  - NAUSEA [None]
  - TREMOR [None]
  - OEDEMA PERIPHERAL [None]
  - DECREASED APPETITE [None]
  - DISEASE PROGRESSION [None]
  - ASTHENIA [None]
  - MUSCULAR WEAKNESS [None]
  - DEHYDRATION [None]
  - HYPONATRAEMIA [None]
  - JOINT SWELLING [None]
  - ANAEMIA [None]
  - DYSPNOEA [None]
  - FATIGUE [None]
